FAERS Safety Report 7000355-8 (Version None)
Quarter: 2010Q3

REPORT INFORMATION
  Report Type: 
  Country: None (occurrence: None)
  Receive Date: 20100920
  Receipt Date: 20100517
  Transmission Date: 20110219
  Serious: Yes (Disabling)
  Sender: FDA-Public Use
  Company Number: US-ASTRAZENECA-2006UW07015

PATIENT
  Age: 14660 Day
  Sex: Female
  Weight: 65.8 kg

DRUGS (9)
  1. SEROQUEL [Suspect]
     Indication: BORDERLINE PERSONALITY DISORDER
     Route: 048
     Dates: start: 20041216, end: 20051026
  2. SEROQUEL [Suspect]
     Indication: DEPRESSION
     Route: 048
     Dates: start: 20041216, end: 20051026
  3. GEODON [Concomitant]
     Dates: start: 20040101
  4. DEPAKOTE [Concomitant]
     Dates: start: 20050310
  5. ZOLOFT [Concomitant]
     Dates: start: 20050310
  6. ZOLOFT [Concomitant]
     Dosage: 150 MG PO AM
     Dates: start: 20051026
  7. BUSPAR [Concomitant]
     Dates: start: 20050310
  8. TEMAZEPAM [Concomitant]
     Dates: start: 20051026
  9. RISPERDAL [Concomitant]
     Dates: start: 20051026

REACTIONS (3)
  - BLOOD CHOLESTEROL INCREASED [None]
  - BLOOD GLUCOSE INCREASED [None]
  - DIABETES MELLITUS [None]
